FAERS Safety Report 15660846 (Version 1)
Quarter: 2018Q4

REPORT INFORMATION
  Report Type: Spontaneous
  Country: US (occurrence: US)
  Receive Date: 20181127
  Receipt Date: 20181127
  Transmission Date: 20190205
  Serious: No
  Sender: FDA-Public Use
  Company Number: US-TEVA-2018-US-871268

PATIENT
  Sex: Male

DRUGS (2)
  1. DILTITAB [Suspect]
     Active Substance: DILTIAZEM
     Indication: ATRIAL FIBRILLATION
     Dosage: 120 MILLIGRAM DAILY;
  2. DILTITAB [Suspect]
     Active Substance: DILTIAZEM
     Dosage: 240 MILLIGRAM DAILY;

REACTIONS (1)
  - Off label use [Unknown]
